FAERS Safety Report 10202745 (Version 1)
Quarter: 2014Q2

REPORT INFORMATION
  Report Type: Spontaneous
  Country: IN (occurrence: IN)
  Receive Date: 20140528
  Receipt Date: 20140528
  Transmission Date: 20141212
  Serious: Yes (Other)
  Sender: FDA-Public Use
  Company Number: CHPA2014IN007054

PATIENT
  Age: 85 Year
  Sex: Female

DRUGS (1)
  1. OTRIVINE ADULT MEASURED DOSE SINUSITIS SPRAY [Suspect]
     Indication: NASAL CONGESTION
     Dosage: ONE SPRAY IN EACH NOSTRIL, 2-3 TIMES A DAY
     Route: 045
     Dates: start: 20140520, end: 20140520

REACTIONS (1)
  - Aphagia [Recovered/Resolved]
